FAERS Safety Report 5571813-8 (Version None)
Quarter: 2007Q4

REPORT INFORMATION
  Report Type: 
  Country: None (occurrence: None)
  Receive Date: 20071221
  Receipt Date: 20071214
  Transmission Date: 20080405
  Serious: Yes (Death, Life-Threatening, Hospitalization)
  Sender: FDA-Public Use
  Company Number: B0500539A

PATIENT
  Age: 85 Year
  Sex: Female

DRUGS (6)
  1. AUGMENTIN '125' [Suspect]
     Route: 048
     Dates: start: 20071110, end: 20071120
  2. PREVISCAN [Suspect]
     Indication: DRUG USE FOR UNKNOWN INDICATION
     Route: 065
     Dates: end: 20071121
  3. LASILIX [Concomitant]
     Route: 065
  4. DIGOXIN [Concomitant]
     Route: 065
  5. TARDYFERON [Concomitant]
     Route: 065
  6. VITAMIN B-12 [Concomitant]
     Route: 065

REACTIONS (9)
  - ANURIA [None]
  - CARDIAC DISORDER [None]
  - COAGULOPATHY [None]
  - HAEMATOMA [None]
  - HAEMORRHAGIC ANAEMIA [None]
  - PALLOR [None]
  - PERITONEAL EFFUSION [None]
  - RECTAL HAEMORRHAGE [None]
  - SHOCK HAEMORRHAGIC [None]
